FAERS Safety Report 9839530 (Version 7)
Quarter: 2015Q4

REPORT INFORMATION
  Report Type: Report from Study
  Country: US (occurrence: US)
  Receive Date: 20140124
  Receipt Date: 20151110
  Transmission Date: 20160305
  Serious: Yes (Other)
  Sender: FDA-Public Use
  Company Number: US-ROCHE-1337579

PATIENT
  Age: 59 Year
  Sex: Male

DRUGS (13)
  1. XOLAIR [Suspect]
     Active Substance: OMALIZUMAB
     Indication: IDIOPATHIC URTICARIA
     Route: 058
  2. XOLAIR [Suspect]
     Active Substance: OMALIZUMAB
     Indication: RHINITIS ALLERGIC
  3. XOLAIR [Suspect]
     Active Substance: OMALIZUMAB
     Indication: DRY SKIN
  4. TOPICORT (UNITED STATES) [Concomitant]
     Route: 061
  5. XOLAIR [Suspect]
     Active Substance: OMALIZUMAB
     Indication: URTICARIA
  6. OMEPRAZOLE. [Concomitant]
     Active Substance: OMEPRAZOLE
     Route: 065
  7. LIALDA [Concomitant]
     Active Substance: MESALAMINE
     Route: 065
  8. CETRIZINE [Concomitant]
     Active Substance: CETIRIZINE HYDROCHLORIDE
     Route: 048
  9. ZANTAC [Concomitant]
     Active Substance: RANITIDINE HYDROCHLORIDE
     Route: 048
  10. XOLAIR [Suspect]
     Active Substance: OMALIZUMAB
     Indication: DERMATITIS ALLERGIC
  11. XOLAIR [Suspect]
     Active Substance: OMALIZUMAB
     Indication: PSORIASIS
     Dosage: HAD IT ONLY ONE TIME
     Route: 042
     Dates: start: 201310
  12. XOLAIR [Suspect]
     Active Substance: OMALIZUMAB
     Indication: DERMATITIS
  13. PLAQUENIL [Concomitant]
     Active Substance: HYDROXYCHLOROQUINE SULFATE
     Route: 048

REACTIONS (24)
  - Blood blister [Not Recovered/Not Resolved]
  - Inflammation [Not Recovered/Not Resolved]
  - Contusion [Not Recovered/Not Resolved]
  - Skin ulcer [Unknown]
  - Ill-defined disorder [Not Recovered/Not Resolved]
  - Pyrexia [Unknown]
  - Dry throat [Not Recovered/Not Resolved]
  - Off label use [Unknown]
  - Skin discolouration [Unknown]
  - Burning sensation [Unknown]
  - Skin injury [Unknown]
  - Scar [Not Recovered/Not Resolved]
  - Feeling abnormal [Unknown]
  - Feeling hot [Not Recovered/Not Resolved]
  - Exsanguination [Not Recovered/Not Resolved]
  - Erythema [Unknown]
  - Malaise [Unknown]
  - Skin ulcer [Not Recovered/Not Resolved]
  - Deafness [Not Recovered/Not Resolved]
  - Skin haemorrhage [Unknown]
  - Swelling [Not Recovered/Not Resolved]
  - Pain [Not Recovered/Not Resolved]
  - Nightmare [Unknown]
  - Dizziness [Unknown]

NARRATIVE: CASE EVENT DATE: 201310
